FAERS Safety Report 5523135-9 (Version None)
Quarter: 2007Q4

REPORT INFORMATION
  Report Type: 
  Country: None (occurrence: None)
  Receive Date: 20071121
  Receipt Date: 20071115
  Transmission Date: 20080405
  Serious: Yes (Other)
  Sender: FDA-Public Use
  Company Number: US-ASTRAZENECA-2007UW26536

PATIENT
  Age: 6 Year
  Sex: Male
  Weight: 25.4 kg

DRUGS (3)
  1. SYMBICORT [Suspect]
     Indication: ASTHMA
     Dosage: 320/18.0 UG DAILY/80/4.5 UG/2 PUFFS BID
     Route: 055
  2. SINGULAIR [Concomitant]
  3. ALBUTEROL [Concomitant]

REACTIONS (2)
  - BLOOD PRESSURE INCREASED [None]
  - CARDIAC MURMUR [None]
